FAERS Safety Report 18605954 (Version 1)
Quarter: 2020Q4

REPORT INFORMATION
  Report Type: Spontaneous
  Country: FR (occurrence: FR)
  Receive Date: 20201211
  Receipt Date: 20201211
  Transmission Date: 20210114
  Serious: Yes (Hospitalization)
  Sender: FDA-Public Use
  Company Number: FR-MYLANLABS-2020M1100647

PATIENT
  Age: 21 Year
  Sex: Female
  Weight: 47.2 kg

DRUGS (2)
  1. QUETIAPINE. [Suspect]
     Active Substance: QUETIAPINE
     Indication: PSYCHOTIC BEHAVIOUR
     Dosage: UNK
     Route: 048
     Dates: start: 20200908, end: 20201006
  2. LOXAPAC                            /00401802/ [Suspect]
     Active Substance: LOXAPINE SUCCINATE
     Indication: PSYCHOTIC BEHAVIOUR
     Dosage: UNK
     Route: 048
     Dates: start: 20200924, end: 20201006

REACTIONS (2)
  - Eosinophilia [Not Recovered/Not Resolved]
  - Toxic skin eruption [Recovering/Resolving]

NARRATIVE: CASE EVENT DATE: 20201005
